FAERS Safety Report 22062756 (Version 1)
Quarter: 2023Q1

REPORT INFORMATION
  Report Type: Spontaneous
  Country: US (occurrence: US)
  Receive Date: 20230306
  Receipt Date: 20230306
  Transmission Date: 20230418
  Serious: Yes (Hospitalization)
  Sender: FDA-Public Use
  Company Number: US-STRIDES ARCOLAB LIMITED-2023SP002030

PATIENT
  Age: 4 Year
  Sex: Male

DRUGS (16)
  1. AMANTADINE [Suspect]
     Active Substance: AMANTADINE
     Indication: COVID-19
     Dosage: UNK
     Route: 065
  2. AMANTADINE [Suspect]
     Active Substance: AMANTADINE
     Indication: Encephalitis viral
  3. AMANTADINE [Suspect]
     Active Substance: AMANTADINE
     Indication: Encephalitis haemorrhagic
  4. AMANTADINE [Suspect]
     Active Substance: AMANTADINE
     Indication: Necrosis
  5. REMDESIVIR [Concomitant]
     Active Substance: REMDESIVIR
     Indication: COVID-19
     Dosage: UNK
     Route: 065
  6. REMDESIVIR [Concomitant]
     Active Substance: REMDESIVIR
     Indication: Encephalitis viral
  7. REMDESIVIR [Concomitant]
     Active Substance: REMDESIVIR
     Indication: Encephalitis haemorrhagic
  8. REMDESIVIR [Concomitant]
     Active Substance: REMDESIVIR
     Indication: Necrosis
  9. METHYLPREDNISOLONE [Concomitant]
     Active Substance: METHYLPREDNISOLONE
     Indication: COVID-19
     Dosage: UNK
     Route: 065
  10. METHYLPREDNISOLONE [Concomitant]
     Active Substance: METHYLPREDNISOLONE
     Indication: Encephalitis viral
  11. METHYLPREDNISOLONE [Concomitant]
     Active Substance: METHYLPREDNISOLONE
     Indication: Encephalitis haemorrhagic
  12. METHYLPREDNISOLONE [Concomitant]
     Active Substance: METHYLPREDNISOLONE
     Indication: Necrosis
  13. ANAKINRA [Concomitant]
     Active Substance: ANAKINRA
     Indication: COVID-19
     Dosage: UNK
     Route: 065
  14. ANAKINRA [Concomitant]
     Active Substance: ANAKINRA
     Indication: Encephalitis viral
  15. ANAKINRA [Concomitant]
     Active Substance: ANAKINRA
     Indication: Encephalitis haemorrhagic
  16. ANAKINRA [Concomitant]
     Active Substance: ANAKINRA
     Indication: Necrosis

REACTIONS (2)
  - Therapy partial responder [Unknown]
  - Off label use [Unknown]
